FAERS Safety Report 25126806 (Version 1)
Quarter: 2025Q1

REPORT INFORMATION
  Report Type: Spontaneous
  Country: JP (occurrence: JP)
  Receive Date: 20250327
  Receipt Date: 20250327
  Transmission Date: 20250409
  Serious: Yes (Hospitalization, Other)
  Sender: JOHNSON AND JOHNSON
  Company Number: JP-BAYER-2025A040691

PATIENT
  Age: 68 Year
  Sex: Male
  Weight: 71.3 kg

DRUGS (4)
  1. RIVAROXABAN [Suspect]
     Active Substance: RIVAROXABAN
     Indication: Venous thrombosis limb
     Route: 048
     Dates: end: 20250124
  2. Anti-tumor necrosis factor monoclonal antibody [Concomitant]
     Indication: Gastric cancer
     Dates: start: 20241113
  3. PACLITAXEL [Concomitant]
     Active Substance: PACLITAXEL
     Indication: Gastric cancer
     Dates: start: 20241113
  4. RAMUCIRUMAB [Concomitant]
     Active Substance: RAMUCIRUMAB
     Indication: Gastric cancer
     Dates: start: 20241113

REACTIONS (3)
  - Tumour haemorrhage [Recovered/Resolved]
  - Anaemia [Recovered/Resolved]
  - Gastric cancer [Unknown]

NARRATIVE: CASE EVENT DATE: 20250115
